FAERS Safety Report 10329559 (Version 6)
Quarter: 2014Q4

REPORT INFORMATION
  Report Type: Report from Study
  Country: FR (occurrence: FR)
  Receive Date: 20140721
  Receipt Date: 20141117
  Transmission Date: 20150528
  Serious: Yes (Other)
  Sender: FDA-Public Use
  Company Number: FR-JNJFOC-20140503206

PATIENT
  Age: 62 Year
  Sex: Male
  Weight: 85 kg

DRUGS (16)
  1. PLAVIX [Concomitant]
     Active Substance: CLOPIDOGREL BISULFATE
  2. LASILIX [Concomitant]
     Active Substance: FUROSEMIDE
  3. DISCOTRINE [Concomitant]
     Active Substance: NITROGLYCERIN
  4. CORVASAL [Concomitant]
     Active Substance: LINSIDOMINE
  5. AMLODIPINE [Concomitant]
     Active Substance: AMLODIPINE BESYLATE
  6. LASILIX [Concomitant]
     Active Substance: FUROSEMIDE
  7. IMMUNOGLOBULINS [Concomitant]
     Active Substance: HUMAN IMMUNOGLOBULIN G
     Indication: URINARY TRACT INFECTION
     Dates: start: 20141001
  8. RAMIPRIL. [Concomitant]
     Active Substance: RAMIPRIL
  9. IBRUTINIB [Suspect]
     Active Substance: IBRUTINIB
     Indication: CHRONIC LYMPHOCYTIC LEUKAEMIA
     Route: 048
     Dates: start: 20140424
  10. HUMALOG [Concomitant]
     Active Substance: INSULIN LISPRO
  11. CORVASAL [Concomitant]
     Active Substance: LINSIDOMINE
  12. TAHOR [Concomitant]
     Active Substance: ATORVASTATIN CALCIUM
  13. ASPEGIC [Concomitant]
     Active Substance: ASPIRIN DL-LYSINE
  14. LANTUS [Concomitant]
     Active Substance: INSULIN GLARGINE
  15. IMMUNOGLOBULINS [Concomitant]
     Active Substance: HUMAN IMMUNOGLOBULIN G
     Indication: IMMUNOGLOBULINS DECREASED
     Dates: start: 20141001
  16. IBRUTINIB [Suspect]
     Active Substance: IBRUTINIB
     Indication: LYMPHOCYTIC LYMPHOMA
     Route: 048
     Dates: start: 20140424

REACTIONS (5)
  - Prostatitis [Unknown]
  - Acute coronary syndrome [Unknown]
  - Lymphocytosis [Unknown]
  - White blood cell count increased [Recovering/Resolving]
  - Platelet count decreased [Unknown]

NARRATIVE: CASE EVENT DATE: 20140430
